FAERS Safety Report 8369960-0 (Version None)
Quarter: 2012Q2

REPORT INFORMATION
  Report Type: 
  Country: None (occurrence: None)
  Receive Date: 20120518
  Receipt Date: 20120515
  Transmission Date: 20120825
  Serious: Yes (Hospitalization, Other)
  Sender: FDA-Public Use
  Company Number: US-PFIZER INC-2010085418

PATIENT
  Sex: Male
  Weight: 34.55 kg

DRUGS (12)
  1. MORPHINE [Concomitant]
     Indication: HEADACHE
     Dosage: 2 MG, UNK
     Dates: start: 20090814
  2. ZYRTEC [Concomitant]
     Dosage: 5 MG, 30 DAYS
     Route: 048
     Dates: start: 20090824
  3. PROVENTIL-HFA [Suspect]
     Dosage: 2 PUFF INHALER EVERY 4 HOURS AS NEEDED FOR 30 DAYS
     Dates: start: 20090824
  4. DILANTIN [Suspect]
     Indication: CONVULSION
     Dosage: 30 MG, 2X/DAY
     Route: 048
  5. ONDANSETRON [Concomitant]
     Dosage: 4MG/2 ML
     Route: 042
     Dates: start: 20090824, end: 20090824
  6. DILANTIN [Suspect]
     Dosage: 60 MG, EVERY BED TIME
     Dates: start: 20090801, end: 20090911
  7. DILANTIN [Suspect]
     Dosage: 75 MG, 2X/DAY
     Route: 048
     Dates: start: 20090810
  8. KETOROLAC [Concomitant]
     Dosage: 60MG/2 ML
     Dates: start: 20090810, end: 20090815
  9. PROMETHAZINE [Concomitant]
     Indication: NAUSEA
     Dosage: 6.25 MG PER RECTAL EVERY 6-8 HOURS AS NEEDED
     Route: 054
     Dates: start: 20090824
  10. DILANTIN [Suspect]
     Dosage: 90 MG, 2X/DAY
     Dates: start: 20090824
  11. SODIUM CHLORIDE [Concomitant]
     Dosage: 0.9% SOLUTION 1000 ML BAG
     Route: 042
     Dates: start: 20090824, end: 20090824
  12. PROMETHAZINE [Concomitant]
     Indication: VOMITING

REACTIONS (1)
  - STEVENS-JOHNSON SYNDROME [None]
